FAERS Safety Report 6064135-2 (Version None)
Quarter: 2009Q1

REPORT INFORMATION
  Report Type: 
  Country: None (occurrence: None)
  Receive Date: 20090203
  Receipt Date: 20090203
  Transmission Date: 20090719
  Serious: Yes (Other)
  Sender: FDA-Public Use
  Company Number: None

PATIENT
  Age: 60 Year
  Sex: Female

DRUGS (1)
  1. TEMAZEPAM [Suspect]
     Indication: INSOMNIA
     Dosage: TAKE 1 TO 2 AT BEDTIME
     Dates: start: 20080101, end: 20090123

REACTIONS (3)
  - FEELING ABNORMAL [None]
  - HALLUCINATION [None]
  - PRODUCT QUALITY ISSUE [None]
